FAERS Safety Report 17389602 (Version 1)
Quarter: 2020Q1

REPORT INFORMATION
  Report Type: Spontaneous
  Country: US (occurrence: US)
  Receive Date: 20200123
  Receipt Date: 20200123
  Transmission Date: 20200409
  Serious: Yes (Hospitalization)
  Sender: FDA-Public Use
  Company Number: None

PATIENT
  Age: 62 Year
  Sex: Female

DRUGS (3)
  1. NAPROXEN. [Concomitant]
     Active Substance: NAPROXEN
     Dates: start: 20190716
  2. TRIAMCINOLON CRE [Concomitant]
     Dates: start: 20200110
  3. HUMIRA [Suspect]
     Active Substance: ADALIMUMAB
     Dosage: ?          OTHER DOSE:40 MG/1.4ML PEN;?
     Route: 058
     Dates: start: 20191231

REACTIONS (2)
  - Surgery [None]
  - Therapy cessation [None]
